FAERS Safety Report 8584610-6 (Version None)
Quarter: 2012Q3

REPORT INFORMATION
  Report Type: 
  Country: None (occurrence: None)
  Receive Date: 20120802
  Receipt Date: 20120802
  Transmission Date: 20120928
  Serious: Yes (Hospitalization)
  Sender: FDA-Public Use
  Company Number: None

PATIENT
  Sex: Female
  Weight: 110.1 kg

DRUGS (2)
  1. CARBOPLATIN [Suspect]
     Dosage: 800 MG
  2. PACLITAXEL [Suspect]
     Dosage: 380 MG

REACTIONS (5)
  - CHEST PAIN [None]
  - TACHYCARDIA [None]
  - SUICIDAL IDEATION [None]
  - DYSPNOEA [None]
  - DEHYDRATION [None]
